FAERS Safety Report 20389942 (Version 1)
Quarter: 2022Q1

REPORT INFORMATION
  Report Type: Spontaneous
  Country: AR (occurrence: AR)
  Receive Date: 20220128
  Receipt Date: 20220128
  Transmission Date: 20220424
  Serious: No
  Sender: FDA-Public Use
  Company Number: AR-PFIZER INC-202200069210

PATIENT
  Age: 8 Year
  Sex: Female

DRUGS (1)
  1. GENOTROPIN [Suspect]
     Active Substance: SOMATROPIN
     Indication: Foetal growth restriction
     Dosage: 2.2 UNKNOWN UNITS AND FREQUENCY

REACTIONS (6)
  - Drug dose omission by device [Not Recovered/Not Resolved]
  - Wrong technique in device usage process [Unknown]
  - Device difficult to use [Unknown]
  - Device breakage [Unknown]
  - Device issue [Unknown]
  - Device leakage [Unknown]
